FAERS Safety Report 23045274 (Version 1)
Quarter: 2023Q4

REPORT INFORMATION
  Report Type: Spontaneous
  Country: US (occurrence: US)
  Receive Date: 20231009
  Receipt Date: 20231009
  Transmission Date: 20240109
  Serious: No
  Sender: FDA-Public Use
  Company Number: US-drreddys-LIT/USA/23/0178858

PATIENT
  Age: 12 Year
  Sex: Female

DRUGS (4)
  1. MERCAPTOPURINE [Suspect]
     Active Substance: MERCAPTOPURINE
     Indication: B-cell type acute leukaemia
     Dosage: CYCLE 7 OF MAINTENANCE CHEMOTHERAPY
     Route: 048
  2. MERCAPTOPURINE [Suspect]
     Active Substance: MERCAPTOPURINE
     Dosage: RESTARTED AT 12.5 PERCENT OF STANDARD DOSING
     Route: 048
  3. MERCAPTOPURINE [Suspect]
     Active Substance: MERCAPTOPURINE
     Dosage: GRADUALLY INCREASED IN INCREMENTS OF APPROX 12.5 PERCENT BASED ON STANDARD ANC GOALS
     Route: 048
  4. METHOTREXATE [Suspect]
     Active Substance: METHOTREXATE
     Indication: B-cell type acute leukaemia

REACTIONS (1)
  - Skin toxicity [Recovered/Resolved]
